FAERS Safety Report 8251723-8 (Version None)
Quarter: 2012Q1

REPORT INFORMATION
  Report Type: 
  Country: None (occurrence: None)
  Receive Date: 20120321
  Receipt Date: 20110709
  Transmission Date: 20120608
  Serious: Yes (Other)
  Sender: FDA-Public Use
  Company Number: PHHY2011US61542

PATIENT
  Sex: Female

DRUGS (3)
  1. LISINOPRIL [Concomitant]
  2. CLONIDINE [Concomitant]
  3. VALTURNA [Suspect]
     Dosage: 1 DF (150/160 MG),PER DAY
     Dates: end: 20110101

REACTIONS (4)
  - FEELING ABNORMAL [None]
  - BLOOD PRESSURE INCREASED [None]
  - ABDOMINAL DISCOMFORT [None]
  - HEADACHE [None]
